FAERS Safety Report 8525503-X (Version None)
Quarter: 2012Q3

REPORT INFORMATION
  Report Type: 
  Country: None (occurrence: None)
  Receive Date: 20120720
  Receipt Date: 20120713
  Transmission Date: 20120928
  Serious: Yes (Other)
  Sender: FDA-Public Use
  Company Number: CA-JNJFOC-20120707480

PATIENT
  Sex: Male
  Weight: 65 kg

DRUGS (3)
  1. PREDNISONE TAB [Concomitant]
     Route: 065
  2. REMICADE [Suspect]
     Indication: CROHN'S DISEASE
     Route: 042
     Dates: start: 20100801, end: 20110322
  3. METHOTREXATE [Concomitant]
     Route: 065

REACTIONS (2)
  - DRUG EFFECT DECREASED [None]
  - COLECTOMY [None]
